FAERS Safety Report 6754467-4 (Version None)
Quarter: 2010Q2

REPORT INFORMATION
  Report Type: 
  Country: None (occurrence: None)
  Receive Date: 20100601
  Receipt Date: 20100513
  Transmission Date: 20101027
  Serious: Yes (Hospitalization, Other)
  Sender: FDA-Public Use
  Company Number: 2010US-33841

PATIENT
  Age: 33 Year
  Sex: Female

DRUGS (1)
  1. VERAPAMIL [Suspect]
     Indication: DRUG USE FOR UNKNOWN INDICATION
     Dosage: 50 TABLETS OF 80 MG

REACTIONS (9)
  - ATRIOVENTRICULAR DISSOCIATION [None]
  - CARDIAC ARREST [None]
  - CARDIOGENIC SHOCK [None]
  - CIRCULATORY COLLAPSE [None]
  - DRUG TOXICITY [None]
  - HYPOTENSION [None]
  - INTENTIONAL OVERDOSE [None]
  - LETHARGY [None]
  - RESPIRATORY ARREST [None]
